FAERS Safety Report 4947484-8 (Version None)
Quarter: 2006Q1

REPORT INFORMATION
  Report Type: 
  Country: None (occurrence: None)
  Receive Date: 20060320
  Receipt Date: 20060308
  Transmission Date: 20060701
  Serious: Yes (Other)
  Sender: FDA-Public Use
  Company Number: US-JNJFOC-20051005300

PATIENT
  Sex: Male
  Weight: 82.56 kg

DRUGS (10)
  1. REMICADE [Suspect]
     Indication: RHEUMATOID ARTHRITIS
     Route: 042
  2. METHOTREXATE [Concomitant]
  3. SYNTHROID [Concomitant]
  4. AGGRENOX [Concomitant]
  5. AGGRENOX [Concomitant]
  6. ASPIRIN [Concomitant]
  7. LODINE [Concomitant]
  8. PLAQUENIL [Concomitant]
  9. NAPROXIN [Concomitant]
  10. LUPRON [Concomitant]
     Route: 050

REACTIONS (4)
  - CORONARY ARTERY DISEASE [None]
  - PLEURAL EFFUSION [None]
  - PNEUMOTHORAX [None]
  - PULMONARY OEDEMA [None]
